FAERS Safety Report 5051269-4 (Version None)
Quarter: 2006Q3

REPORT INFORMATION
  Report Type: 
  Country: None (occurrence: None)
  Receive Date: 20060710
  Receipt Date: 20060628
  Transmission Date: 20061208
  Serious: Yes (Other)
  Sender: FDA-Public Use
  Company Number: HQWYE576831MAY06

PATIENT
  Age: 39 Year
  Sex: Female

DRUGS (1)
  1. TRIQUILAR-28 (LEVONORGESTREL/ETHINYL ESTRADIOL/INERT, TABLET) [Suspect]
     Indication: ORAL CONTRACEPTION
     Dosage: ORAL
     Route: 048
     Dates: start: 20050101

REACTIONS (6)
  - ABORTION INDUCED [None]
  - BLIGHTED OVUM [None]
  - DIARRHOEA [None]
  - DRUG INEFFECTIVE [None]
  - PREGNANCY ON ORAL CONTRACEPTIVE [None]
  - UNINTENDED PREGNANCY [None]
